FAERS Safety Report 10239374 (Version 3)
Quarter: 2014Q3

REPORT INFORMATION
  Report Type: Spontaneous
  Country: US (occurrence: None)
  Receive Date: 20140612
  Receipt Date: 20140801
  Transmission Date: 20150326
  Serious: Yes (Hospitalization)
  Sender: FDA-Public Use
  Company Number: UNT-2014-001475

PATIENT
  Age: 54 Year
  Sex: Female
  Weight: 114.7 kg

DRUGS (4)
  1. REMODULIN [Suspect]
     Active Substance: TREPROSTINIL
     Indication: COR PULMONALE CHRONIC
     Dosage: 0.022 UG/KG/MIN, CONTINUING, IV DRIP
     Route: 041
     Dates: start: 20120827
  2. ADCIRCA [Concomitant]
     Active Substance: TADALAFIL
  3. COUMADIN [Concomitant]
     Active Substance: WARFARIN SODIUM
  4. LETAIRIS [Concomitant]
     Active Substance: AMBRISENTAN

REACTIONS (6)
  - Rash pruritic [None]
  - Abdominal infection [None]
  - Pneumonia [None]
  - Rash [None]
  - Haemorrhage [None]
  - Purpura [None]

NARRATIVE: CASE EVENT DATE: 20140427
